FAERS Safety Report 24081162 (Version 1)
Quarter: 2024Q3

REPORT INFORMATION
  Report Type: Spontaneous
  Country: US (occurrence: US)
  Receive Date: 20240711
  Receipt Date: 20240711
  Transmission Date: 20241017
  Serious: No
  Sender: KRAMER LABORATORIES
  Company Number: US-KRAMERLABS-2023-US-030715

PATIENT
  Age: 55 Year
  Sex: Female
  Weight: 60.33 kg

DRUGS (1)
  1. NIZORAL A-D [Suspect]
     Active Substance: KETOCONAZOLE
     Indication: Dandruff
     Dosage: APPLY TO WHOLE HEAD DAILY
     Route: 061
     Dates: start: 20230914, end: 20230921

REACTIONS (3)
  - Application site pruritus [Recovering/Resolving]
  - Intentional product misuse [Recovered/Resolved]
  - Inappropriate schedule of product administration [Recovered/Resolved]

NARRATIVE: CASE EVENT DATE: 20230914
